FAERS Safety Report 10544975 (Version 2)
Quarter: 2015Q1

REPORT INFORMATION
  Report Type: Spontaneous
  Country: US (occurrence: None)
  Receive Date: 20141020
  Receipt Date: 20150120
  Transmission Date: 20150720
  Serious: No
  Sender: FDA-Public Use
  Company Number: AEGR000756

PATIENT
  Age: 42 Year
  Sex: Male
  Weight: 112.5 kg

DRUGS (15)
  1. CRESTOR [Concomitant]
     Active Substance: ROSUVASTATIN CALCIUM
  2. ASPIRIN (ACETYLSALICYLIC ACID) [Concomitant]
     Active Substance: ASPIRIN
  3. VITAMIN E [Concomitant]
     Active Substance: .ALPHA.-TOCOPHEROL
  4. AMLODIPINE (AMLODIPINE BESILATE) [Concomitant]
  5. SERTRALINE HCL (SERTRALINE HYDROCHLORIDE) [Concomitant]
  6. METOPROLOL TARTRATE. [Concomitant]
     Active Substance: METOPROLOL TARTRATE
  7. LOVAZA (OMEGA-3-ETHYL ESTER) [Concomitant]
  8. JUXTAPID [Suspect]
     Active Substance: LOMITAPIDE MESYLATE
     Indication: TYPE IIA HYPERLIPIDAEMIA
     Dates: start: 20130401, end: 20130408
  9. ZETIA [Concomitant]
     Active Substance: EZETIMIBE
  10. ISOSORBIDE MONONITRATE. [Concomitant]
     Active Substance: ISOSORBIDE MONONITRATE
  11. ROSUVASTATIN [Concomitant]
     Active Substance: ROSUVASTATIN
  12. PLAVIX (CLOPIDOGREL BISULFATE) [Concomitant]
  13. FOLIC ACID. [Concomitant]
     Active Substance: FOLIC ACID
  14. IRON [Concomitant]
     Active Substance: IRON
  15. NIACIN. [Concomitant]
     Active Substance: NIACIN

REACTIONS (1)
  - Fatigue [None]

NARRATIVE: CASE EVENT DATE: 201409
